FAERS Safety Report 6397783-0 (Version None)
Quarter: 2009Q4

REPORT INFORMATION
  Report Type: 
  Country: None (occurrence: None)
  Receive Date: 20091007
  Receipt Date: 20090928
  Transmission Date: 20100525
  Serious: Yes (Death)
  Sender: FDA-Public Use
  Company Number: 8052729

PATIENT
  Age: 25 Year
  Sex: Male

DRUGS (3)
  1. CIMZIA [Suspect]
     Indication: CROHN'S DISEASE
     Dosage: 400 MG  SC
     Route: 058
     Dates: start: 20090814, end: 20090901
  2. CIMZIA [Suspect]
     Indication: CROHN'S DISEASE
     Dosage: 400 MG  SC
     Route: 058
     Dates: start: 20081114, end: 20081201
  3. CIMZIA [Suspect]
     Indication: CROHN'S DISEASE
     Dosage: 400 MG  SC
     Route: 058
     Dates: start: 20090306

REACTIONS (1)
  - DEATH [None]
